FAERS Safety Report 5375084-7 (Version None)
Quarter: 2007Q2

REPORT INFORMATION
  Report Type: 
  Country: None (occurrence: None)
  Receive Date: 20070625
  Receipt Date: 20070320
  Transmission Date: 20071010
  Serious: No
  Sender: FDA-Public Use
  Company Number: 07P-163-0362590-00

PATIENT
  Age: 76 Year
  Sex: Male
  Weight: 91 kg

DRUGS (10)
  1. HUMIRA [Suspect]
     Indication: RHEUMATOID ARTHRITIS
     Dosage: 40 MG, 1 IN 2 WK, SUBCUTANEOUS; 40 MG, 1 IN 2 WK, SUBCUTANEOUS
     Route: 058
     Dates: start: 20040101, end: 20060801
  2. HUMIRA [Suspect]
     Indication: RHEUMATOID ARTHRITIS
     Dosage: 40 MG, 1 IN 2 WK, SUBCUTANEOUS; 40 MG, 1 IN 2 WK, SUBCUTANEOUS
     Route: 058
     Dates: start: 20060801, end: 20070301
  3. METHOTREXATE SODIUM [Concomitant]
  4. ARTHROTEC [Concomitant]
  5. ADVAIR DISKUS 100/50 [Concomitant]
  6. FLUTICASONE PROPIONATE [Concomitant]
  7. FOLIC ACID [Concomitant]
  8. PRAVASTATIN SODIUM [Concomitant]
  9. ASPIRIN [Concomitant]
  10. FUROSEMIDE [Concomitant]

REACTIONS (1)
  - MALIGNANT MELANOMA [None]
